FAERS Safety Report 9540190 (Version 3)
Quarter: 2014Q1

REPORT INFORMATION
  Report Type: Spontaneous
  Country: RU (occurrence: RU)
  Receive Date: 20130920
  Receipt Date: 20140303
  Transmission Date: 20141002
  Serious: Yes (Other)
  Sender: FDA-Public Use
  Company Number: RU-BRISTOL-MYERS SQUIBB COMPANY-19395722

PATIENT
  Age: 58 Year
  Sex: Female

DRUGS (6)
  1. ERBITUX SOLN FOR INF [Suspect]
     Indication: COLORECTAL CANCER METASTATIC
     Dosage: 400MG ON 4SEP13 ALSO TKN: STOPPED
     Route: 042
     Dates: start: 20130828, end: 20130904
  2. PREDNISOLONE [Concomitant]
     Route: 042
     Dates: start: 20130828, end: 20130904
  3. NO-SPA [Concomitant]
     Route: 042
  4. BARALGIN [Concomitant]
     Route: 042
  5. ADEMETIONINE [Concomitant]
     Route: 042
  6. SALINE [Concomitant]
     Route: 042
     Dates: start: 20130828, end: 20130904

REACTIONS (8)
  - Hepatic mass [Unknown]
  - Blood alkaline phosphatase increased [Unknown]
  - Alanine aminotransferase increased [Unknown]
  - Hepatomegaly [Unknown]
  - Localised intraabdominal fluid collection [Unknown]
  - Chest X-ray abnormal [Unknown]
  - General physical health deterioration [Recovering/Resolving]
  - Aspartate aminotransferase increased [Unknown]
